FAERS Safety Report 9364493 (Version 1)
Quarter: 2013Q2

REPORT INFORMATION
  Report Type: Spontaneous
  Country: CA (occurrence: CA)
  Receive Date: 20130624
  Receipt Date: 20130624
  Transmission Date: 20140414
  Serious: Yes (Hospitalization, Other)
  Sender: FDA-Public Use
  Company Number: CA-ACTAVIS-2013-10793

PATIENT
  Age: 59 Year
  Sex: Female

DRUGS (5)
  1. CYCLOPHOSPHAMIDE (UNKNOWN) [Suspect]
     Indication: INVASIVE LOBULAR BREAST CARCINOMA
     Dosage: FOUR CYCLES OF 600 MG/M2
     Route: 065
     Dates: start: 200701
  2. DOCETAXEL (UNKNOWN) [Suspect]
     Indication: INVASIVE LOBULAR BREAST CARCINOMA
     Dosage: ONE CYCLE OF 100 MG/M2
     Route: 065
  3. PACLITAXEL [Suspect]
     Indication: INVASIVE LOBULAR BREAST CARCINOMA
     Dosage: FOUR CYCLES OF 175 MG/M2, UNKNOWN
     Dates: start: 200703
  4. GEMCITABINE [Suspect]
     Indication: INVASIVE LOBULAR BREAST CARCINOMA
     Dosage: FOUR CYCLES OF 2000 MG/M2, UNKNOWN
     Route: 065
     Dates: start: 200703
  5. DOXORUBICIN [Concomitant]
     Indication: INVASIVE LOBULAR BREAST CARCINOMA
     Dosage: FOUR CYCLES OF 60 MG/M2, UNKNOWN
     Route: 065
     Dates: start: 200701

REACTIONS (1)
  - Alveolitis allergic [Recovered/Resolved]
